FAERS Safety Report 23635679 (Version 1)
Quarter: 2024Q1

REPORT INFORMATION
  Report Type: Spontaneous
  Country: US (occurrence: US)
  Receive Date: 20240315
  Receipt Date: 20240315
  Transmission Date: 20240410
  Serious: No
  Sender: FDA-Public Use
  Company Number: US-JNJFOC-20240328025

PATIENT
  Age: 82 Year
  Weight: 108.05 kg

DRUGS (1)
  1. TYLENOL 8HR [Suspect]
     Active Substance: ACETAMINOPHEN
     Indication: Procedural pain
     Route: 065

REACTIONS (3)
  - Hepatic pain [Unknown]
  - Overdose [Unknown]
  - Inappropriate schedule of product administration [Unknown]
